FAERS Safety Report 8736241 (Version 3)
Quarter: 2012Q4

REPORT INFORMATION
  Report Type: 
  Country: US (occurrence: US)
  Receive Date: 20120822
  Receipt Date: 20121105
  Transmission Date: 20130627
  Serious: Yes (Other)
  Sender: FDA-Public Use
  Company Number: US-PFIZER INC-2012202104

PATIENT
  Age: 70 Year
  Sex: Male
  Weight: 72.56 kg

DRUGS (4)
  1. CALAN [Suspect]
     Indication: HYPERTENSION
     Dosage: 360 mg, 1x/day
     Dates: start: 20051026
  2. CALAN SR [Suspect]
     Dosage: UNK
  3. LIPITOR [Suspect]
     Dosage: UNK
  4. COUMADIN [Concomitant]
     Dosage: UNK

REACTIONS (1)
  - Lung neoplasm malignant [Unknown]
